FAERS Safety Report 25958561 (Version 2)
Quarter: 2025Q4

REPORT INFORMATION
  Report Type: Spontaneous
  Country: CA (occurrence: CA)
  Receive Date: 20251024
  Receipt Date: 20251201
  Transmission Date: 20260118
  Serious: Yes (Death)
  Sender: ASTELLAS
  Company Number: CA-ASTELLAS-2025-AER-058957

PATIENT
  Age: 48 Year
  Sex: Male

DRUGS (15)
  1. TACROLIMUS [Suspect]
     Active Substance: TACROLIMUS
     Indication: Immunosuppression
     Dosage: TRIPLE IMMUNOSUPPRESSION, TROUGH TARGET OF 6-8 NG/ML AFTER THE FIRST MONTH (8-10 NG/ML FOR FIRST MON
     Route: 065
  2. TACROLIMUS [Suspect]
     Active Substance: TACROLIMUS
     Dosage: TROUGH TARGET WAS DECREASED TO 4-6 NG/ML
     Route: 065
  3. ERBITUX [Suspect]
     Active Substance: CETUXIMAB
     Indication: Product used for unknown indication
     Route: 042
  4. CAPECITABINE [Suspect]
     Active Substance: CAPECITABINE
     Indication: Metastases to central nervous system
     Route: 065
  5. CARBOPLATIN [Suspect]
     Active Substance: CARBOPLATIN
     Indication: Product used for unknown indication
     Route: 042
  6. DEXAMETHASONE [Suspect]
     Active Substance: DEXAMETHASONE
     Indication: Immunosuppression
     Dosage: DUAL IMMUNOSUPPRESSION WITH SIROLIMUS
     Route: 065
  7. DEXAMETHASONE [Suspect]
     Active Substance: DEXAMETHASONE
     Dosage: TRANSITIONED
     Route: 065
  8. FLUOROURACIL [Suspect]
     Active Substance: FLUOROURACIL
     Indication: Metastases to central nervous system
     Route: 036
  9. MYCOPHENOLATE MOFETIL [Suspect]
     Active Substance: MYCOPHENOLATE MOFETIL
     Indication: Immunosuppression
     Dosage: TRIPLE IMMUNOSUPPRESSION BID
     Route: 065
  10. MYCOPHENOLATE MOFETIL [Suspect]
     Active Substance: MYCOPHENOLATE MOFETIL
     Dosage: TRIPLE IMMUNOSUPPRESSION BID, DOSE REDUCED
     Route: 065
  11. PACLITAXEL [Suspect]
     Active Substance: PACLITAXEL
     Indication: Product used for unknown indication
     Dosage: LIQUID
     Route: 042
  12. PREDNISONE [Suspect]
     Active Substance: PREDNISONE
     Indication: Immunosuppression
     Route: 065
  13. PREDNISONE [Suspect]
     Active Substance: PREDNISONE
     Dosage: TRIPLE IMMUNOSUPPRESSION
     Route: 065
  14. SIROLIMUS [Suspect]
     Active Substance: SIROLIMUS
     Indication: Immunosuppression
     Dosage: TROUGH LEVELS 10-15 NG/ML
     Route: 065
  15. LIBTAYO [Suspect]
     Active Substance: CEMIPLIMAB-RWLC
     Indication: Immunosuppression
     Route: 065

REACTIONS (1)
  - Haemorrhagic stroke [Fatal]
